FAERS Safety Report 13469430 (Version 2)
Quarter: 2017Q2

REPORT INFORMATION
  Report Type: Spontaneous
  Country: US (occurrence: US)
  Receive Date: 20170421
  Receipt Date: 20170608
  Transmission Date: 20170830
  Serious: No
  Sender: FDA-Public Use
  Company Number: US-ALLERGAN-1715210US

PATIENT
  Age: 77 Year
  Sex: Female
  Weight: 85.82 kg

DRUGS (1)
  1. NORCO [Suspect]
     Active Substance: ACETAMINOPHEN\HYDROCODONE BITARTRATE
     Indication: BACK PAIN
     Dosage: 1 DF, Q6HR
     Route: 048
     Dates: start: 201404

REACTIONS (1)
  - No adverse event [Unknown]
